FAERS Safety Report 4396241-2 (Version None)
Quarter: 2004Q3

REPORT INFORMATION
  Report Type: 
  Country: None (occurrence: None)
  Receive Date: 20040713
  Receipt Date: 20040129
  Transmission Date: 20050211
  Serious: Yes (Other)
  Sender: FDA-Public Use
  Company Number: PHRM2004FR00719

PATIENT
  Age: 68 Year
  Sex: Male

DRUGS (1)
  1. LAMISIL [Suspect]
     Indication: NAIL TINEA
     Dosage: 250 MG, QD
     Route: 048
     Dates: start: 20040106, end: 20040123

REACTIONS (19)
  - ABDOMINAL PAIN [None]
  - ALANINE AMINOTRANSFERASE INCREASED [None]
  - ANOREXIA [None]
  - ASPARTATE AMINOTRANSFERASE INCREASED [None]
  - ASTHENIA [None]
  - BLOOD ALKALINE PHOSPHATASE INCREASED [None]
  - BLOOD BILIRUBIN INCREASED [None]
  - CHROMATURIA [None]
  - CYTOLYTIC HEPATITIS [None]
  - DIARRHOEA [None]
  - FAECES DISCOLOURED [None]
  - GAMMA-GLUTAMYLTRANSFERASE INCREASED [None]
  - HEPATITIS CHOLESTATIC [None]
  - JAUNDICE [None]
  - MUSCULAR WEAKNESS [None]
  - NEUTROPENIA [None]
  - PRURITUS [None]
  - SPINAL FRACTURE [None]
  - WEIGHT DECREASED [None]
